FAERS Safety Report 4620189-9 (Version None)
Quarter: 2005Q1

REPORT INFORMATION
  Report Type: 
  Country: None (occurrence: None)
  Receive Date: 20050328
  Receipt Date: 20050121
  Transmission Date: 20050727
  Serious: Yes (Hospitalization)
  Sender: FDA-Public Use
  Company Number: ES-AMGEN-UK108770

PATIENT
  Sex: Male
  Weight: 84 kg

DRUGS (4)
  1. ARANESP [Suspect]
     Indication: ANAEMIA OF MALIGNANT DISEASE
     Route: 058
     Dates: start: 20041110
  2. FLUDARABINE PHOSPHATE [Suspect]
     Route: 065
     Dates: end: 20050112
  3. RITUXIMAB [Concomitant]
     Route: 065
     Dates: end: 20050112
  4. CYCLOPHOSPHAMIDE [Concomitant]
     Route: 065
     Dates: end: 20050112

REACTIONS (4)
  - DRUG TOXICITY [None]
  - HAEMOGLOBIN DECREASED [None]
  - PYREXIA [None]
  - WHITE BLOOD CELL COUNT DECREASED [None]
